FAERS Safety Report 15436659 (Version 5)
Quarter: 2019Q3

REPORT INFORMATION
  Report Type: Spontaneous
  Country: US (occurrence: US)
  Receive Date: 20180927
  Receipt Date: 20190723
  Transmission Date: 20191004
  Serious: Yes (Other)
  Sender: FDA-Public Use
  Company Number: US-PFIZER INC-2018389490

PATIENT
  Age: 60 Year
  Sex: Female

DRUGS (5)
  1. LYRICA [Suspect]
     Active Substance: PREGABALIN
     Dosage: 100 MG, UNK
  2. LYRICA [Suspect]
     Active Substance: PREGABALIN
     Dosage: 150 MG, UNK
  3. TRAMADOL. [Concomitant]
     Active Substance: TRAMADOL
     Dosage: 200 MG, UNK
  4. LYRICA [Suspect]
     Active Substance: PREGABALIN
     Indication: SLEEP DISORDER
     Dosage: 600 MG, DAILY (150 MG IN THE MORNING, 200 MG IN THE AFTERNOON, 250 MG IN THE EVENING)
  5. TRAMADOL. [Concomitant]
     Active Substance: TRAMADOL
     Dosage: 50 MG, 3X/DAY

REACTIONS (10)
  - Malaise [Unknown]
  - Drug dependence [Unknown]
  - Hyperhidrosis [Unknown]
  - Pain [Unknown]
  - Off label use [Unknown]
  - Withdrawal syndrome [Unknown]
  - Drug effective for unapproved indication [Unknown]
  - Burning sensation [Unknown]
  - Chills [Unknown]
  - Gait disturbance [Unknown]
